FAERS Safety Report 7074754-2 (Version None)
Quarter: 2010Q4

REPORT INFORMATION
  Report Type: 
  Country: None (occurrence: None)
  Receive Date: 20101029
  Receipt Date: 20101021
  Transmission Date: 20110411
  Serious: Yes (Hospitalization, Other)
  Sender: FDA-Public Use
  Company Number: US-BAXTER-2010BH025755

PATIENT
  Age: 36 Year
  Sex: Male

DRUGS (18)
  1. DIANEAL [Suspect]
     Indication: PERITONEAL DIALYSIS
     Route: 033
  2. INSULIN [Concomitant]
     Route: 065
  3. TICLID [Concomitant]
     Route: 065
  4. VALSARTAN [Concomitant]
     Route: 065
  5. LISINOPRIL [Concomitant]
     Route: 065
  6. NIFEDIPINE [Concomitant]
     Route: 065
  7. CLONIDINE [Concomitant]
     Route: 065
  8. FERROUS SULFATE [Concomitant]
     Route: 065
  9. PREGABALIN [Concomitant]
     Route: 065
  10. DILAUDID [Concomitant]
     Route: 065
  11. CALCITRIOL [Concomitant]
     Route: 065
  12. ZOFRAN [Concomitant]
     Route: 065
  13. LANTUS [Concomitant]
     Route: 065
  14. COZAAR [Concomitant]
     Route: 065
  15. LASIX [Concomitant]
     Route: 065
  16. COREG [Concomitant]
     Route: 065
  17. SIMVASTATIN [Concomitant]
     Route: 065
  18. SEVELAMER [Concomitant]
     Route: 065

REACTIONS (3)
  - DYSPNOEA [None]
  - HEART RATE INCREASED [None]
  - PERICARDITIS [None]
